FAERS Safety Report 9765083 (Version 1)
Quarter: 2013Q4

REPORT INFORMATION
  Report Type: Spontaneous
  Country: US (occurrence: None)
  Receive Date: 20131216
  Receipt Date: 20131216
  Transmission Date: 20140711
  Serious: Yes (Disabling)
  Sender: FDA-Public Use
  Company Number: None

PATIENT
  Age: 64 Year
  Sex: Female
  Weight: 95.26 kg

DRUGS (1)
  1. CIPROFLOXACIN 500 MG BAY [Suspect]
     Indication: DIVERTICULITIS
     Route: 048
     Dates: start: 20131120, end: 20131127

REACTIONS (7)
  - Tendonitis [None]
  - Neuropathy peripheral [None]
  - Condition aggravated [None]
  - Speech disorder [None]
  - Pain in extremity [None]
  - Arthralgia [None]
  - Mobility decreased [None]
